FAERS Safety Report 13977139 (Version 1)
Quarter: 2017Q3

REPORT INFORMATION
  Report Type: Spontaneous
  Country: US (occurrence: US)
  Receive Date: 20170915
  Receipt Date: 20170915
  Transmission Date: 20171128
  Serious: Yes (Other)
  Sender: FDA-Public Use
  Company Number: US-TORRENT-00003378

PATIENT
  Age: 16 Year
  Sex: Female

DRUGS (6)
  1. LAMOTRIGINE. [Concomitant]
     Active Substance: LAMOTRIGINE
  2. VENLAFAXINE [Suspect]
     Active Substance: VENLAFAXINE HYDROCHLORIDE
  3. BUPROPION. [Suspect]
     Active Substance: BUPROPION
  4. METFORMIN [Concomitant]
     Active Substance: METFORMIN HYDROCHLORIDE
  5. VENLAFAXINE/FLUOXETINE [Concomitant]
  6. ZIPRASIDONE. [Suspect]
     Active Substance: ZIPRASIDONE

REACTIONS (2)
  - Depression [Not Recovered/Not Resolved]
  - Anxiety [Not Recovered/Not Resolved]

NARRATIVE: CASE EVENT DATE: 201501
